FAERS Safety Report 8189244-3 (Version None)
Quarter: 2012Q1

REPORT INFORMATION
  Report Type: 
  Country: None (occurrence: None)
  Receive Date: 20120305
  Receipt Date: 20120221
  Transmission Date: 20120608
  Serious: Yes (Other)
  Sender: FDA-Public Use
  Company Number: 1186663

PATIENT
  Age: 70 Year
  Sex: Female
  Weight: 40.8 kg

DRUGS (7)
  1. VANCOMYCIN HYDROCHLORIDE [Suspect]
     Indication: WOUND INFECTION
     Dosage: 0.5G B.I.D, UNKNOWN, INTRAVENOUS DRIP, 0.5G ONCE DAILY (UNKNOWN), 0.5G B.I.D (UNKNOWN), 0.5G ONCE DA
     Route: 041
     Dates: start: 20110701, end: 20110705
  2. VANCOMYCIN HYDROCHLORIDE [Suspect]
     Indication: WOUND INFECTION
     Dosage: 0.5G B.I.D, UNKNOWN, INTRAVENOUS DRIP, 0.5G ONCE DAILY (UNKNOWN), 0.5G B.I.D (UNKNOWN), 0.5G ONCE DA
     Route: 041
     Dates: start: 20110517, end: 20110531
  3. VANCOMYCIN HYDROCHLORIDE [Suspect]
     Indication: WOUND INFECTION
     Dosage: 0.5G B.I.D, UNKNOWN, INTRAVENOUS DRIP, 0.5G ONCE DAILY (UNKNOWN), 0.5G B.I.D (UNKNOWN), 0.5G ONCE DA
     Route: 041
     Dates: start: 20110619, end: 20110621
  4. VANCOMYCIN HYDROCHLORIDE [Suspect]
     Indication: WOUND INFECTION
     Dosage: 0.5G B.I.D, UNKNOWN, INTRAVENOUS DRIP, 0.5G ONCE DAILY (UNKNOWN), 0.5G B.I.D (UNKNOWN), 0.5G ONCE DA
     Route: 041
     Dates: start: 20110601, end: 20110613
  5. VANCOMYCIN HYDROCHLORIDE [Suspect]
     Indication: WOUND INFECTION
     Dosage: 0.5G B.I.D, UNKNOWN, INTRAVENOUS DRIP, 0.5G ONCE DAILY (UNKNOWN), 0.5G B.I.D (UNKNOWN), 0.5G ONCE DA
     Route: 041
     Dates: start: 20110617, end: 20110618
  6. MEROPENEM [Concomitant]
  7. LINEZOLID [Concomitant]

REACTIONS (1)
  - DRUG ERUPTION [None]
